FAERS Safety Report 5428028-3 (Version None)
Quarter: 2007Q3

REPORT INFORMATION
  Report Type: 
  Country: None (occurrence: None)
  Receive Date: 20070828
  Receipt Date: 20070816
  Transmission Date: 20080115
  Serious: Yes (Other)
  Sender: FDA-Public Use
  Company Number: US-PFIZER INC-2007068229

PATIENT
  Sex: Female

DRUGS (2)
  1. ALDACTONE [Suspect]
     Indication: FOLLICULITIS
  2. ALDACTONE [Suspect]
     Indication: CYST

REACTIONS (3)
  - AMENORRHOEA [None]
  - MIGRAINE [None]
  - NAUSEA [None]
